FAERS Safety Report 18124291 (Version 1)
Quarter: 2020Q3

REPORT INFORMATION
  Report Type: Report from Study
  Country: ES (occurrence: ES)
  Receive Date: 20200807
  Receipt Date: 20200807
  Transmission Date: 20201103
  Serious: Yes (Other)
  Sender: FDA-Public Use
  Company Number: ES-MYLANLABS-2020M1069953

PATIENT
  Age: 11 Year
  Sex: Male

DRUGS (3)
  1. AZATHIOPRINE. [Suspect]
     Active Substance: AZATHIOPRINE
     Indication: NEUROMYELITIS OPTICA SPECTRUM DISORDER
     Route: 065
  2. GLATIRAMER [Suspect]
     Active Substance: GLATIRAMER
     Indication: NEUROMYELITIS OPTICA SPECTRUM DISORDER
     Route: 065
  3. INTERFERON BETA 1A RECOMBINANT [Suspect]
     Active Substance: INTERFERON BETA-1A
     Indication: NEUROMYELITIS OPTICA SPECTRUM DISORDER
     Route: 065

REACTIONS (2)
  - Off label use [Unknown]
  - Therapy non-responder [Unknown]
